FAERS Safety Report 4486556-1 (Version None)
Quarter: 2004Q4

REPORT INFORMATION
  Report Type: 
  Country: None (occurrence: None)
  Receive Date: 20041026
  Receipt Date: 20041026
  Transmission Date: 20050328
  Serious: Yes (Life-Threatening, Hospitalization, Disabling)
  Sender: FDA-Public Use
  Company Number: None

PATIENT
  Age: 42 Year
  Sex: Male
  Weight: 70.0807 kg

DRUGS (2)
  1. LEVAQUIN [Suspect]
     Indication: CHRONIC RESPIRATORY FAILURE
     Dosage: 250 MG 1 QD X 10 DAYS
     Dates: start: 20041021
  2. LEVAQUIN [Suspect]
     Indication: MUSCULAR DYSTROPHY
     Dosage: 250 MG 1 QD X 10 DAYS
     Dates: start: 20041021

REACTIONS (1)
  - INFLUENZA [None]
